FAERS Safety Report 8344703-5 (Version None)
Quarter: 2012Q2

REPORT INFORMATION
  Report Type: 
  Country: None (occurrence: None)
  Receive Date: 20120508
  Receipt Date: 20120427
  Transmission Date: 20120825
  Serious: Yes (Other)
  Sender: FDA-Public Use
  Company Number: US-JNJFOC-20120403056

PATIENT
  Sex: Female
  Weight: 87.54 kg

DRUGS (11)
  1. METFORMIN HCL [Concomitant]
  2. RAMIPRIL [Concomitant]
  3. REMICADE [Suspect]
     Indication: CROHN'S DISEASE
     Dosage: PREVIOUSLY REPORTED AS 5 MG/KG; 13 INFUSIONS
     Route: 042
     Dates: start: 20100121, end: 20111118
  4. ASPIRIN [Concomitant]
  5. LEXAPRO [Concomitant]
  6. CALCIUM CARBONATE [Concomitant]
  7. ACTOS [Concomitant]
  8. FLU VACCINE [Concomitant]
  9. DILTIAZEM [Concomitant]
  10. LIPITOR [Concomitant]
  11. PREDNISONE TAB [Concomitant]
     Route: 048

REACTIONS (1)
  - LYMPHOMA [None]
